FAERS Safety Report 4601446-9 (Version None)
Quarter: 2005Q1

REPORT INFORMATION
  Report Type: 
  Country: None (occurrence: None)
  Receive Date: 20050308
  Receipt Date: 20041202
  Transmission Date: 20050727
  Serious: Yes (Death, Hospitalization, Other)
  Sender: FDA-Public Use
  Company Number: US-BRISTOL-MYERS SQUIBB COMPANY-12782777

PATIENT
  Age: 40 Year
  Sex: Female
  Weight: 82 kg

DRUGS (6)
  1. TAXOL [Suspect]
     Indication: BREAST CANCER
     Route: 042
     Dates: start: 20041119, end: 20041119
  2. DECADRON [Concomitant]
     Indication: PREMEDICATION
     Route: 048
     Dates: start: 20040101, end: 20040101
  3. ZANTAC [Concomitant]
     Indication: PREMEDICATION
     Route: 042
     Dates: start: 20040101, end: 20040101
  4. BENADRYL [Concomitant]
     Indication: PREMEDICATION
     Route: 042
     Dates: start: 20040101, end: 20040101
  5. CYTOXAN [Concomitant]
  6. ADRIAMYCIN PFS [Concomitant]

REACTIONS (6)
  - ACUTE RESPIRATORY FAILURE [None]
  - DIABETIC KETOACIDOSIS [None]
  - PANCREATITIS [None]
  - PULMONARY ALVEOLAR HAEMORRHAGE [None]
  - PULMONARY INFARCTION [None]
  - PULMONARY OEDEMA [None]
